FAERS Safety Report 4571890-7 (Version None)
Quarter: 2005Q1

REPORT INFORMATION
  Report Type: 
  Country: None (occurrence: None)
  Receive Date: 20050202
  Receipt Date: 20050118
  Transmission Date: 20050727
  Serious: Yes (Hospitalization, Other)
  Sender: FDA-Public Use
  Company Number: US-2005-001251

PATIENT
  Age: 32 Year
  Sex: Female
  Weight: 80.3 kg

DRUGS (1)
  1. YASMIN [Suspect]
     Dosage: 1 TAB(S), 1X/DAY, ORAL
     Route: 048
     Dates: start: 20040117, end: 20040731

REACTIONS (13)
  - COGNITIVE DETERIORATION [None]
  - DIZZINESS [None]
  - GRAND MAL CONVULSION [None]
  - HEADACHE [None]
  - HYPERTENSION [None]
  - LOSS OF CONSCIOUSNESS [None]
  - METRORRHAGIA [None]
  - NAUSEA [None]
  - SYNCOPE [None]
  - SYNCOPE VASOVAGAL [None]
  - VISION BLURRED [None]
  - VOMITING [None]
  - WEIGHT INCREASED [None]
